FAERS Safety Report 9984415 (Version 1)
Quarter: 2014Q1

REPORT INFORMATION
  Report Type: Report from Study
  Country: US (occurrence: US)
  Receive Date: 20140307
  Receipt Date: 20140307
  Transmission Date: 20141002
  Serious: No
  Sender: FDA-Public Use
  Company Number: US-ABBVIE-13P-163-1182939-00

PATIENT
  Sex: Female

DRUGS (3)
  1. HUMIRA [Suspect]
     Indication: JUVENILE IDIOPATHIC ARTHRITIS
     Dates: start: 201302
  2. HUMIRA [Suspect]
     Dates: start: 201306
  3. MOBIC [Concomitant]
     Indication: ARTHRALGIA

REACTIONS (1)
  - Drug effect incomplete [Recovering/Resolving]
